FAERS Safety Report 9586855 (Version 1)
Quarter: 2013Q4

REPORT INFORMATION
  Report Type: Spontaneous
  Country: US (occurrence: US)
  Receive Date: 20131003
  Receipt Date: 20131003
  Transmission Date: 20140711
  Serious: Yes (Hospitalization)
  Sender: FDA-Public Use
  Company Number: US-AMGEN-USASP2013068620

PATIENT
  Age: 54 Year
  Sex: Female

DRUGS (2)
  1. ENBREL [Suspect]
     Indication: RHEUMATOID ARTHRITIS
     Dosage: 50 MG, QWK
     Route: 065
     Dates: start: 20100301, end: 2011
  2. METHOTREXATE [Concomitant]
     Dosage: UNK
     Dates: end: 2011

REACTIONS (2)
  - Lethargy [Recovered/Resolved]
  - Anaemia [Recovered/Resolved]
